FAERS Safety Report 5125280-9 (Version None)
Quarter: 2006Q4

REPORT INFORMATION
  Report Type: 
  Country: None (occurrence: None)
  Receive Date: 20061006
  Receipt Date: 20060923
  Transmission Date: 20070319
  Serious: Yes (Hospitalization)
  Sender: FDA-Public Use
  Company Number: 2006114822

PATIENT

DRUGS (2)
  1. LYRICA [Suspect]
  2. REMERON [Suspect]

REACTIONS (1)
  - COLITIS ISCHAEMIC [None]
